FAERS Safety Report 6823686-0 (Version None)
Quarter: 2010Q3

REPORT INFORMATION
  Report Type: 
  Country: None (occurrence: None)
  Receive Date: 20100708
  Receipt Date: 20060824
  Transmission Date: 20110219
  Serious: No
  Sender: FDA-Public Use
  Company Number: US-PFIZER INC-2006105375

PATIENT
  Sex: Male

DRUGS (2)
  1. CHANTIX [Suspect]
     Dates: start: 20060821
  2. NICOTINE [Interacting]
     Route: 062

REACTIONS (2)
  - DEPRESSION [None]
  - DRUG INTERACTION [None]
